FAERS Safety Report 9306883 (Version 1)
Quarter: 2013Q1

REPORT INFORMATION
  Report Type: Spontaneous
  Country: US (occurrence: None)
  Receive Date: 20130308
  Receipt Date: 20130308
  Transmission Date: 20140127
  Serious: Yes (Other)
  Sender: FDA-Public Use
  Company Number: 2013-005

PATIENT
  Age: 54 Year
  Sex: Female

DRUGS (1)
  1. PRIALT (ZICONOTIDE) INTRATHECAL INFUSION) [Suspect]
     Indication: PAIN
     Dates: end: 20121108

REACTIONS (18)
  - Transient ischaemic attack [None]
  - Fungal infection [None]
  - Abdominal pain upper [None]
  - Dysphemia [None]
  - Anger [None]
  - Abnormal behaviour [None]
  - Emotional distress [None]
  - Muscle spasms [None]
  - Burning sensation [None]
  - Dry mouth [None]
  - Disturbance in attention [None]
  - Headache [None]
  - Pain [None]
  - Mania [None]
  - Dysarthria [None]
  - Depression [None]
  - Implant site infection [None]
  - Staphylococcal infection [None]
